FAERS Safety Report 21487905 (Version 1)
Quarter: 2022Q4

REPORT INFORMATION
  Report Type: Spontaneous
  Country: US (occurrence: US)
  Receive Date: 20221020
  Receipt Date: 20221020
  Transmission Date: 20230112
  Serious: No
  Sender: FDA-Public Use
  Company Number: US-BIOGEN-2022BI01161861

PATIENT
  Age: 26 Year
  Sex: Male

DRUGS (1)
  1. SPINRAZA [Suspect]
     Active Substance: NUSINERSEN
     Indication: Spinal muscular atrophy
     Route: 050

REACTIONS (3)
  - Procedural pain [Unknown]
  - Paraesthesia [Unknown]
  - CSF white blood cell count increased [Unknown]

NARRATIVE: CASE EVENT DATE: 20221011
